FAERS Safety Report 8729960 (Version 2)
Quarter: 2012Q4

REPORT INFORMATION
  Report Type: Spontaneous
  Country: US (occurrence: None)
  Receive Date: 20120731
  Receipt Date: 20120816
  Transmission Date: 20130627
  Serious: Yes (Other)
  Sender: FDA-Public Use
  Company Number: ACO_31266_2012

PATIENT
  Age: 51 Year
  Sex: Female
  Weight: 81.6 kg

DRUGS (18)
  1. AMPYRA [Suspect]
     Indication: PERONEAL NERVE PALSY
     Dosage: 10 MG, Q 12 HRS, ORAL, 10 MG, Q 12 HRS
     Route: 048
     Dates: start: 201012
  2. AMPYRA [Suspect]
     Indication: MUSCULAR WEAKNESS
     Dosage: 10 MG, Q 12 HRS, ORAL, 10 MG, Q 12 HRS
     Route: 048
     Dates: start: 201012
  3. AMPYRA [Suspect]
     Indication: PERONEAL NERVE PALSY
     Dosage: 10 MG, Q 12 HRS, ORAL, 10 MG, Q 12 HRS
     Route: 048
     Dates: start: 201107
  4. AMPYRA [Suspect]
     Indication: MUSCULAR WEAKNESS
     Dosage: 10 MG, Q 12 HRS, ORAL, 10 MG, Q 12 HRS
     Route: 048
     Dates: start: 201107
  5. AMPYRA [Suspect]
     Indication: PERONEAL NERVE PALSY
     Dosage: 10 MG, Q 12 HRS, ORAL, 10 MG, Q 12 HRS
     Route: 048
     Dates: start: 201205
  6. AMPYRA [Suspect]
     Indication: MUSCULAR WEAKNESS
     Dosage: 10 MG, Q 12 HRS, ORAL, 10 MG, Q 12 HRS
     Route: 048
     Dates: start: 201205
  7. CELLCEPT [Concomitant]
  8. MYCOPHENOLATE MOFETIL [Concomitant]
  9. COQ10	/00517201/ (UBIDECARENONE) [Concomitant]
  10. CRANBERRY /01512301/ (VACCINIUM MACROCARPON) [Concomitant]
  11. GINKOBA (GINKGO BILOBA) [Concomitant]
  12. MAGNESIUM (MAGNESIUM) [Concomitant]
  13. MULTIVITAMIN /00097801/ (ASCORBIC ACID, CALCIUM PANTOTHENATE, ERGOCALCIFEROL, NICOTINAMIDE, PYRIDOXI [Concomitant]
  14. OXYBUTYNIN [Concomitant]
  15. VITAMIN B (VITAMIN B COMPLEX) [Concomitant]
  16. VITAMIN B12 [Concomitant]
  17. VITAMIN C  /00008001/ (ASCORBIC ACID) [Concomitant]
  18. VITAMIN E /00110501/ (TOCOPHEROL) [Concomitant]

REACTIONS (6)
  - LOSS OF CONSCIOUSNESS [None]
  - GASTROINTESTINAL INFECTION [None]
  - VOMITING [None]
  - GAIT DISTURBANCE [None]
  - NAUSEA [None]
  - DRUG INEFFECTIVE [None]
